FAERS Safety Report 19818743 (Version 2)
Quarter: 2021Q4

REPORT INFORMATION
  Report Type: Spontaneous
  Country: GB (occurrence: GB)
  Receive Date: 20210912
  Receipt Date: 20211013
  Transmission Date: 20220304
  Serious: Yes (Other)
  Sender: FDA-Public Use
  Company Number: GB-MHRA-EYC 00259603

PATIENT
  Age: 59 Year
  Sex: Male
  Weight: 100 kg

DRUGS (1)
  1. SILDENAFIL [Suspect]
     Active Substance: SILDENAFIL
     Indication: Erectile dysfunction
     Dosage: 50 MILLIGRAM
     Route: 048

REACTIONS (1)
  - Atrial fibrillation [Recovered/Resolved]

NARRATIVE: CASE EVENT DATE: 20210812
